FAERS Safety Report 14671907 (Version 3)
Quarter: 2018Q2

REPORT INFORMATION
  Report Type: Spontaneous
  Country: AT (occurrence: AT)
  Receive Date: 20180323
  Receipt Date: 20180604
  Transmission Date: 20180711
  Serious: Yes (Life-Threatening, Hospitalization, Other)
  Sender: FDA-Public Use
  Company Number: AT-BRISTOL-MYERS SQUIBB COMPANY-BMS-2018-025486

PATIENT
  Age: 85 Year
  Sex: Male
  Weight: 84 kg

DRUGS (2)
  1. ELIQUIS [Suspect]
     Active Substance: APIXABAN
     Indication: PULMONARY EMBOLISM
     Dosage: 5 MG, BID
     Route: 065
     Dates: start: 201302
  2. ELIQUIS [Suspect]
     Active Substance: APIXABAN
     Indication: DEEP VEIN THROMBOSIS
     Dosage: 2.5 MG, UNK
     Route: 065
     Dates: end: 20180313

REACTIONS (10)
  - Lung disorder [Unknown]
  - Incorrect dose administered [Unknown]
  - Sjogren^s syndrome [Unknown]
  - Pulmonary embolism [Recovering/Resolving]
  - Acute kidney injury [Unknown]
  - Peripheral arterial occlusive disease [Unknown]
  - Thrombosis [Recovering/Resolving]
  - Urinary tract infection [Unknown]
  - Trichiasis [Unknown]
  - Aortic valve sclerosis [Unknown]

NARRATIVE: CASE EVENT DATE: 20180313
